FAERS Safety Report 9744334 (Version 2)
Quarter: 2013Q4

REPORT INFORMATION
  Report Type: Report from Study
  Country: DE (occurrence: DE)
  Receive Date: 20131210
  Receipt Date: 20131210
  Transmission Date: 20140711
  Serious: Yes (Death, Hospitalization, Other)
  Sender: FDA-Public Use
  Company Number: DE-ABBVIE-10P-062-0636415-00

PATIENT
  Age: 75 Year
  Sex: Female
  Weight: 68 kg

DRUGS (4)
  1. HUMIRA 40 MG/ 0.8 ML PRE-FILLED SYRINGE [Suspect]
     Indication: RHEUMATOID ARTHRITIS
     Dates: start: 20091105, end: 201003
  2. CORTISONE [Concomitant]
     Indication: RHEUMATOID ARTHRITIS
  3. DIGIMERK [Concomitant]
     Indication: PRODUCT USED FOR UNKNOWN INDICATION
  4. THEOPHYLLINE [Concomitant]
     Indication: PRODUCT USED FOR UNKNOWN INDICATION

REACTIONS (6)
  - Myocardial infarction [Fatal]
  - Abdominal symptom [Fatal]
  - Gallbladder disorder [Fatal]
  - Cardiogenic shock [Fatal]
  - Systemic inflammatory response syndrome [Fatal]
  - Renal failure [Unknown]
